FAERS Safety Report 5154435-2 (Version None)
Quarter: 2006Q4

REPORT INFORMATION
  Report Type: 
  Country: None (occurrence: None)
  Receive Date: 20061114
  Receipt Date: 20061101
  Transmission Date: 20070319
  Serious: Yes (Other)
  Sender: FDA-Public Use
  Company Number: 2006135777

PATIENT
  Sex: Female

DRUGS (1)
  1. DEPO-PROVERA [Suspect]
     Indication: ENDOMETRIOSIS
     Dosage: 150 MG (150 MG, SINGLE INJECTION)
     Dates: start: 20060201, end: 20060201

REACTIONS (3)
  - FLUID RETENTION [None]
  - NAUSEA [None]
  - SYNCOPE [None]
